FAERS Safety Report 15499012 (Version 1)
Quarter: 2018Q4

REPORT INFORMATION
  Report Type: Spontaneous
  Country: US (occurrence: US)
  Receive Date: 20181015
  Receipt Date: 20181015
  Transmission Date: 20190205
  Serious: No
  Sender: FDA-Public Use
  Company Number: US-JNJFOC-20181003410

PATIENT
  Sex: Female
  Weight: 89.81 kg

DRUGS (1)
  1. SIMPONI ARIA [Suspect]
     Active Substance: GOLIMUMAB
     Indication: PSORIATIC ARTHROPATHY
     Route: 042
     Dates: start: 201708

REACTIONS (2)
  - Asthenia [Unknown]
  - Nausea [Unknown]

NARRATIVE: CASE EVENT DATE: 2017
